FAERS Safety Report 16236054 (Version 1)
Quarter: 2019Q2

REPORT INFORMATION
  Report Type: Spontaneous
  Country: PT (occurrence: PT)
  Receive Date: 20190425
  Receipt Date: 20190425
  Transmission Date: 20190711
  Serious: Yes (Other)
  Sender: FDA-Public Use
  Company Number: PT-AUROBINDO-AUR-APL-2019-021419

PATIENT

DRUGS (1)
  1. AMOXICILLIN. [Suspect]
     Active Substance: AMOXICILLIN
     Indication: URINARY TRACT INFECTION
     Dosage: UNK
     Route: 065

REACTIONS (7)
  - Rash vesicular [Recovered/Resolved]
  - Drug hypersensitivity [Recovered/Resolved]
  - Pain of skin [Recovered/Resolved]
  - Skin lesion [Recovered/Resolved]
  - Skin exfoliation [Recovered/Resolved]
  - Malaise [Unknown]
  - Pruritus [Recovered/Resolved]
